FAERS Safety Report 14523607 (Version 1)
Quarter: 2018Q1

REPORT INFORMATION
  Report Type: Report from Study
  Country: AE (occurrence: AE)
  Receive Date: 20180212
  Receipt Date: 20180212
  Transmission Date: 20180509
  Serious: Yes (Other)
  Sender: FDA-Public Use
  Company Number: AE-INGENUS PHARMACEUTICALS NJ, LLC-ING201802-000139

PATIENT

DRUGS (4)
  1. IMATINIB [Concomitant]
     Active Substance: IMATINIB
  2. DASATINIB. [Concomitant]
     Active Substance: DASATINIB
  3. NILOTINIB [Concomitant]
     Active Substance: NILOTINIB
  4. CARISOPRODOL, ASPIRIN AND CODEINE PHOSPHATE [Suspect]
     Active Substance: ASPIRIN\CARISOPRODOL\CODEINE PHOSPHATE

REACTIONS (2)
  - Myocardial infarction [Unknown]
  - Drug ineffective [Unknown]
